FAERS Safety Report 8549989-X (Version None)
Quarter: 2012Q3

REPORT INFORMATION
  Report Type: 
  Country: None (occurrence: None)
  Receive Date: 20120718
  Receipt Date: 20120703
  Transmission Date: 20120928
  Serious: Yes (Disabling, Other)
  Sender: FDA-Public Use
  Company Number: 2011MA001301

PATIENT
  Sex: Male

DRUGS (28)
  1. FLUTICASONE PROPIONATE [Concomitant]
  2. SEROQUEL [Concomitant]
  3. SPIRONOLACTONE [Concomitant]
  4. WARFARIN [Concomitant]
  5. ABILIFY [Concomitant]
  6. CLONAZEPAM [Concomitant]
  7. PROPOXYPHENE HCL AND ACETAMINOPHEN [Concomitant]
  8. SPIRIVA [Concomitant]
  9. CELEBREX [Concomitant]
  10. FUROSEMIDE [Concomitant]
  11. POTASSIUM CHLORIDE [Concomitant]
  12. SIMVASTATIN [Concomitant]
  13. TEMAZEPAM [Concomitant]
  14. CYMBALTA [Concomitant]
  15. HYDROCODONE BITARTRATE AND ACETAMINOPHEN [Concomitant]
  16. LEVOTHYROXINE SODIUM [Concomitant]
  17. SYMBICORT [Concomitant]
  18. AMLODIPINE [Concomitant]
  19. NITROGLYCERIN [Concomitant]
  20. METOCLOPRAMIDE [Suspect]
     Indication: DYSPEPSIA
     Dosage: 10 MG;AC + HS;PO
     Route: 048
     Dates: start: 20080729, end: 20101001
  21. METOCLOPRAMIDE [Suspect]
     Indication: ABDOMINAL DISTENSION
     Dosage: 10 MG;AC + HS;PO
     Route: 048
     Dates: start: 20080729, end: 20101001
  22. CARVEDILOL [Concomitant]
  23. PLAVIX [Concomitant]
  24. TRAZODONE HYDROCHLORIDE [Concomitant]
  25. AMIODARONE HCL [Concomitant]
  26. BUSPIRONE HCL [Concomitant]
  27. GLIPIZIDE [Concomitant]
  28. METOLAZONE [Concomitant]

REACTIONS (18)
  - EXTRAPYRAMIDAL DISORDER [None]
  - NERVOUS SYSTEM DISORDER [None]
  - DEFORMITY [None]
  - ANXIETY [None]
  - EMOTIONAL DISORDER [None]
  - PAIN [None]
  - DYSTONIA [None]
  - FAMILY STRESS [None]
  - ACTIVITIES OF DAILY LIVING IMPAIRED [None]
  - ANHEDONIA [None]
  - TARDIVE DYSKINESIA [None]
  - RESTLESS LEGS SYNDROME [None]
  - QUALITY OF LIFE DECREASED [None]
  - MULTIPLE INJURIES [None]
  - ECONOMIC PROBLEM [None]
  - INCORRECT DRUG ADMINISTRATION DURATION [None]
  - EMOTIONAL DISTRESS [None]
  - FEAR [None]
